FAERS Safety Report 7547574-X (Version None)
Quarter: 2011Q2

REPORT INFORMATION
  Report Type: 
  Country: None (occurrence: None)
  Receive Date: 20110614
  Receipt Date: 20110607
  Transmission Date: 20111010
  Serious: Yes (Other)
  Sender: FDA-Public Use
  Company Number: CHPA2011BR07754

PATIENT
  Sex: Male
  Weight: 90 kg

DRUGS (2)
  1. ATACAND [Concomitant]
     Indication: HYPERTENSION
     Dosage: 1 DF, QD
     Route: 048
  2. CATAFLAM [Suspect]
     Indication: MUSCLE STRAIN
     Dosage: UNK, UNK
     Route: 061

REACTIONS (6)
  - LOSS OF CONSCIOUSNESS [None]
  - MALAISE [None]
  - BLOOD PRESSURE DECREASED [None]
  - FEELING ABNORMAL [None]
  - VISION BLURRED [None]
  - DIZZINESS [None]
